FAERS Safety Report 8125890-0 (Version None)
Quarter: 2012Q1

REPORT INFORMATION
  Report Type: 
  Country: None (occurrence: None)
  Receive Date: 20120209
  Receipt Date: 20120202
  Transmission Date: 20120608
  Serious: Yes (Other)
  Sender: FDA-Public Use
  Company Number: US-ELI_LILLY_AND_COMPANY-US201110004514

PATIENT
  Sex: Male
  Weight: 135 kg

DRUGS (5)
  1. BYETTA [Suspect]
     Dosage: 5 UG, BID
     Route: 058
     Dates: start: 20071121, end: 20071201
  2. LEVAQUIN [Concomitant]
  3. NOVOLIN R [Concomitant]
  4. NSAID'S [Concomitant]
     Indication: PAIN
  5. HUMALIN [Concomitant]
     Indication: DIABETES MELLITUS

REACTIONS (4)
  - HYPERSENSITIVITY [None]
  - PANCREATITIS [None]
  - CHOLELITHIASIS [None]
  - MALAISE [None]
